FAERS Safety Report 7414910-4 (Version None)
Quarter: 2011Q2

REPORT INFORMATION
  Report Type: 
  Country: None (occurrence: None)
  Receive Date: 20110414
  Receipt Date: 20110330
  Transmission Date: 20111010
  Serious: Yes (Hospitalization)
  Sender: FDA-Public Use
  Company Number: IT-BAYER-2011-029072

PATIENT
  Age: 75 Year
  Sex: Female
  Weight: 69 kg

DRUGS (5)
  1. SORAFENIB (RAF KINASE INHIBITOR) [Suspect]
     Indication: HEPATIC NEOPLASM MALIGNANT
     Dosage: 400 MG, BID
     Route: 048
     Dates: start: 20110222, end: 20110302
  2. CANRENOIC ACID [Concomitant]
     Indication: OEDEMA PERIPHERAL
     Dosage: 50 MG, QD
     Dates: start: 20081118
  3. FUROSEMIDE [Concomitant]
     Indication: OEDEMA PERIPHERAL
     Dosage: 25 MG, Q2WK
     Dates: start: 20081118
  4. PROPRANOLOL HYDROCHLORIDE [Concomitant]
     Indication: PROPHYLAXIS
     Dosage: 20 MG, BID
     Dates: start: 20081118
  5. ABT-869 (LINIFANIB) [Suspect]
     Indication: HEPATIC NEOPLASM MALIGNANT

REACTIONS (1)
  - HEPATIC ENCEPHALOPATHY [None]
